FAERS Safety Report 8462542-1 (Version None)
Quarter: 2012Q2

REPORT INFORMATION
  Report Type: 
  Country: None (occurrence: None)
  Receive Date: 20120607
  Receipt Date: 20120531
  Transmission Date: 20120825
  Serious: Yes (Hospitalization, Other)
  Sender: FDA-Public Use
  Company Number: 2012031182

PATIENT
  Sex: Female
  Weight: 91 kg

DRUGS (10)
  1. HIZENTRA [Suspect]
     Dosage: (70 ML INFUSED SUBCUTANEOUS)
     Route: 058
     Dates: start: 20120424
  2. MOTRIN [Concomitant]
  3. HIZENTRA [Suspect]
     Dosage: (30 ML INFUSED SUBCUTANEOUS
     Route: 058
     Dates: start: 20120503, end: 20120503
  4. HIZENTRA [Suspect]
     Dosage: (30 ML INFUSED SUBCUTANEOUS)
     Route: 058
     Dates: start: 20120503, end: 20120503
  5. HIZENTRA [Suspect]
     Dosage: (30 ML INFUSED SUBCUTANEOUS)
     Route: 058
     Dates: start: 20120507, end: 20120507
  6. HIZENTRA [Suspect]
     Dosage: (30 ML SUBCUTANEOUS)
     Route: 058
     Dates: start: 20120507, end: 20120507
  7. HIZENTRA [Suspect]
     Dosage: (70 ML INFUSED SUBCUTANEOUS)
     Route: 058
     Dates: start: 20120424
  8. BENADRYL [Concomitant]
  9. HIZENTRA [Suspect]
     Indication: IMMUNODEFICIENCY COMMON VARIABLE
     Dosage: 70 ML 1X/WEEK, IN 4 SITES OVER APPROX. 2.5 HOURS, SUBCUTANEOUS
     Route: 058
     Dates: start: 20120313, end: 20120313
  10. HIZENTRA [Suspect]
     Indication: HYPOGAMMAGLOBULINAEMIA
     Dates: start: 20120320, end: 20120320

REACTIONS (7)
  - MIGRAINE [None]
  - MUSCULOSKELETAL STIFFNESS [None]
  - HEADACHE [None]
  - PHOTOPHOBIA [None]
  - BRAIN OEDEMA [None]
  - CONTUSION [None]
  - MENINGITIS ASEPTIC [None]
